FAERS Safety Report 11927907 (Version 1)
Quarter: 2016Q1

REPORT INFORMATION
  Report Type: Report from Study
  Country: CN (occurrence: CN)
  Receive Date: 20160119
  Receipt Date: 20160119
  Transmission Date: 20160526
  Serious: Yes (Other)
  Sender: FDA-Public Use
  Company Number: CN-BRISTOL-MYERS SQUIBB COMPANY-BMS-2016-002711

PATIENT
  Age: 54 Year
  Sex: Male

DRUGS (1)
  1. CETUXIMAB [Suspect]
     Active Substance: CETUXIMAB
     Indication: COLON CANCER
     Dosage: UNK, Q2WK
     Route: 042
     Dates: start: 201410

REACTIONS (3)
  - Eructation [Recovered/Resolved]
  - Abdominal discomfort [Recovered/Resolved]
  - Performance status decreased [Unknown]

NARRATIVE: CASE EVENT DATE: 20160107
